FAERS Safety Report 23407311 (Version 2)
Quarter: 2025Q2

REPORT INFORMATION
  Report Type: Report from Study
  Country: US (occurrence: US)
  Receive Date: 20240116
  Receipt Date: 20250416
  Transmission Date: 20250716
  Serious: Yes (Hospitalization)
  Sender: AMGEN
  Company Number: US-AMGEN-USASP2024007549

PATIENT
  Age: 67 Year
  Sex: Female

DRUGS (3)
  1. TAVNEOS [Suspect]
     Active Substance: AVACOPAN
     Indication: Granulomatosis with polyangiitis
     Dosage: 30 MILLIGRAM, BID (TAKE 3 CAPSULES (30 MG) BY MOUTH DAILY WITH BREAKFAST FOR VASCULITIS)/3 CAPSULES
     Route: 048
     Dates: start: 20230301
  2. TAVNEOS [Suspect]
     Active Substance: AVACOPAN
     Indication: Vasculitis
  3. TAVNEOS [Suspect]
     Active Substance: AVACOPAN
     Indication: Hypersensitivity vasculitis

REACTIONS (1)
  - Hospitalisation [Unknown]
